FAERS Safety Report 8601958-7 (Version None)
Quarter: 2012Q3

REPORT INFORMATION
  Report Type: 
  Country: None (occurrence: None)
  Receive Date: 20120806
  Receipt Date: 20120723
  Transmission Date: 20120928
  Serious: Yes (Other)
  Sender: FDA-Public Use
  Company Number: 2012P1051123

PATIENT
  Age: 17 Year
  Sex: Female
  Weight: 56.6996 kg

DRUGS (4)
  1. MYORISAN [Suspect]
     Indication: ACNE
     Dosage: 40 MG; QOD, PO; 80 MG; QOD; PO
     Route: 048
     Dates: start: 20120712, end: 20120712
  2. MYORISAN [Suspect]
     Indication: ACNE
     Dosage: 40 MG; QOD, PO; 80 MG; QOD; PO
     Route: 048
     Dates: start: 20120712, end: 20120721
  3. BIRTH CONTROL PILLS [Concomitant]
  4. ZOLOFT [Concomitant]

REACTIONS (2)
  - DEPRESSION [None]
  - AGGRESSION [None]
